FAERS Safety Report 14319021 (Version 5)
Quarter: 2019Q1

REPORT INFORMATION
  Report Type: Report from Study
  Country: US (occurrence: US)
  Receive Date: 20171222
  Receipt Date: 20190130
  Transmission Date: 20190417
  Serious: Yes (Hospitalization)
  Sender: FDA-Public Use
  Company Number: US-ACTELION-A-US2017-160799

PATIENT
  Age: 64 Year
  Sex: Female

DRUGS (3)
  1. UPTRAVI [Suspect]
     Active Substance: SELEXIPAG
     Indication: PULMONARY ARTERIAL HYPERTENSION
     Dosage: 800 MCG, BID
     Route: 048
     Dates: start: 20170912
  2. UPTRAVI [Suspect]
     Active Substance: SELEXIPAG
     Dosage: 600 MCG, BID
     Route: 048
     Dates: start: 20170912
  3. UPTRAVI [Suspect]
     Active Substance: SELEXIPAG
     Dosage: 400 MCG, BID
     Route: 048
     Dates: start: 20170913

REACTIONS (15)
  - Pneumonia [Unknown]
  - Myalgia [Unknown]
  - Alopecia [Unknown]
  - Pyrexia [Unknown]
  - Headache [Unknown]
  - Weight increased [Unknown]
  - Tinnitus [Unknown]
  - Flushing [Unknown]
  - Dyspnoea [Unknown]
  - Pain [Unknown]
  - Dizziness [Unknown]
  - Lower respiratory tract infection [Recovering/Resolving]
  - Cough [Recovering/Resolving]
  - Oxygen saturation decreased [Unknown]
  - Nausea [Unknown]

NARRATIVE: CASE EVENT DATE: 20171204
